FAERS Safety Report 6454539-8 (Version None)
Quarter: 2009Q4

REPORT INFORMATION
  Report Type: 
  Country: None (occurrence: None)
  Receive Date: 20091118
  Receipt Date: 20091110
  Transmission Date: 20100525
  Serious: Yes (Death, Hospitalization, Other)
  Sender: FDA-Public Use
  Company Number: 2009US004027

PATIENT
  Age: 18 Year
  Sex: Male

DRUGS (1)
  1. PROGRAF [Suspect]
     Indication: LUNG TRANSPLANT

REACTIONS (21)
  - ARTERIAL THROMBOSIS [None]
  - BACTERIAL INFECTION [None]
  - BRAIN HERNIATION [None]
  - BRAIN OEDEMA [None]
  - CAROTID ARTERY OCCLUSION [None]
  - CEREBRAL ARTERY OCCLUSION [None]
  - CEREBRAL ARTERY THROMBOSIS [None]
  - CEREBRAL ASPERGILLOSIS [None]
  - CEREBRAL INFARCTION [None]
  - CNS VENTRICULITIS [None]
  - CONVULSION [None]
  - CSF CULTURE POSITIVE [None]
  - DRUG TOXICITY [None]
  - ENTEROBACTER INFECTION [None]
  - FUNGAL INFECTION [None]
  - OFF LABEL USE [None]
  - RESPIRATORY DISTRESS [None]
  - SEPTIC EMBOLUS [None]
  - STAPHYLOCOCCAL INFECTION [None]
  - SUPERIOR SAGITTAL SINUS THROMBOSIS [None]
  - TRANSIENT ISCHAEMIC ATTACK [None]
